FAERS Safety Report 10160571 (Version 2)
Quarter: 2014Q2

REPORT INFORMATION
  Report Type: Spontaneous
  Country: JP (occurrence: JP)
  Receive Date: 20140508
  Receipt Date: 20140508
  Transmission Date: 20141212
  Serious: Yes (Other)
  Sender: FDA-Public Use
  Company Number: JP-PFIZER INC-2014111757

PATIENT
  Age: 76 Year
  Sex: Female
  Weight: 51 kg

DRUGS (4)
  1. OXYCODONE HYDROCHLORIDE [Suspect]
     Indication: ANALGESIC THERAPY
     Dosage: 20 MG, DAILY
  2. FENTANYL [Suspect]
     Indication: ANALGESIC THERAPY
     Dosage: 2.1 MG/3 DAYS-1
     Route: 062
  3. ALCOHOL [Concomitant]
     Indication: NERVE BLOCK
     Dosage: 12 ML, UNK
  4. LOXOPROFEN [Concomitant]
     Dosage: 180 MG, DAILY

REACTIONS (3)
  - Delirium [Recovering/Resolving]
  - Drug ineffective [Unknown]
  - Nausea [Recovering/Resolving]
